FAERS Safety Report 8317931 (Version 3)
Quarter: 2013Q1

REPORT INFORMATION
  Report Type: Report from Study
  Country: JP (occurrence: JP)
  Receive Date: 20120102
  Receipt Date: 20130314
  Transmission Date: 20140127
  Serious: Yes (Hospitalization)
  Sender: FDA-Public Use
  Company Number: JP-ROCHE-650882

PATIENT
  Age: 64 Year
  Sex: Male
  Weight: 55 kg

DRUGS (32)
  1. TOCILIZUMAB [Suspect]
     Indication: RHEUMATOID ARTHRITIS
     Route: 041
     Dates: start: 20090205, end: 20090205
  2. TOCILIZUMAB [Suspect]
     Route: 041
     Dates: start: 20090305, end: 20090305
  3. ENBREL [Suspect]
     Indication: RHEUMATOID ARTHRITIS
     Route: 058
     Dates: start: 20090730, end: 20100520
  4. METHOTREXATE [Suspect]
     Indication: RHEUMATOID ARTHRITIS
     Route: 048
     Dates: start: 2009
  5. METHOTREXATE [Suspect]
     Route: 048
     Dates: start: 20090513
  6. METHOTREXATE [Suspect]
     Route: 048
     Dates: start: 20090528
  7. PREDNISOLONE [Suspect]
     Indication: RHEUMATOID ARTHRITIS
     Route: 048
  8. TACROLIMUS [Suspect]
     Indication: PRODUCT USED FOR UNKNOWN INDICATION
     Route: 065
  9. METOLATE [Concomitant]
     Indication: RHEUMATOID ARTHRITIS
     Route: 048
  10. METOLATE [Concomitant]
     Route: 048
  11. ISCOTIN [Concomitant]
     Indication: ANTIBIOTIC PROPHYLAXIS
     Dosage: DOSE FORM: PERORAL AGENT.
     Route: 048
  12. ALFAROL [Concomitant]
     Indication: OSTEOPOROSIS
     Dosage: DRUG: ALFAROL CAPSULES.
     Route: 048
  13. LASIX [Concomitant]
     Indication: HYPERTENSION
     Dosage: DOSEFORM: PERORAL AGENT.
     Route: 048
  14. FOLIAMIN [Concomitant]
     Indication: FOLATE DEFICIENCY
     Dosage: DOSEFORM: PERORAL AGENT.
     Route: 048
  15. GLAKAY [Concomitant]
     Indication: OSTEOPOROSIS
     Route: 048
  16. BONALON [Concomitant]
     Indication: OSTEOPOROSIS
     Dosage: DRUG REPORTED AS BONALON 5MG
     Route: 048
  17. CRESTOR [Concomitant]
     Indication: DYSLIPIDAEMIA
     Route: 048
  18. LOXONIN [Concomitant]
     Indication: RHEUMATOID ARTHRITIS
     Dosage: DOSEFORM: PERORAL AGENT.
     Route: 048
  19. ZYLORIC [Concomitant]
     Indication: HYPERURICAEMIA
     Route: 048
  20. ZANTAC [Concomitant]
     Indication: GASTRITIS
     Route: 048
  21. AMOBAN [Concomitant]
     Indication: INSOMNIA
     Route: 048
  22. FLIVAS [Concomitant]
     Indication: BENIGN PROSTATIC HYPERPLASIA
     Dosage: DRUG: FLIVAS OD.
     Route: 048
     Dates: start: 20090219, end: 20090304
  23. METHYCOBAL [Concomitant]
     Indication: NEUROPATHY PERIPHERAL
     Dosage: DOSEFORM: PERORAL AGENT.
     Route: 048
  24. HARNAL [Concomitant]
     Indication: BENIGN PROSTATIC HYPERPLASIA
     Dosage: DRUG REPORTED AS HARNAL D
     Route: 048
  25. CLINORIL [Concomitant]
     Indication: RHEUMATOID ARTHRITIS
     Route: 048
  26. LAC-B [Concomitant]
     Route: 048
     Dates: start: 20090525, end: 20090816
  27. URSO [Concomitant]
     Route: 048
     Dates: start: 20090526, end: 20090706
  28. TAKEPRON [Concomitant]
     Indication: GASTRITIS
     Route: 048
  29. LIVALO [Concomitant]
     Indication: DYSLIPIDAEMIA
     Route: 048
  30. MUCOSTA [Concomitant]
     Route: 048
  31. VALTREX [Concomitant]
     Route: 048
     Dates: start: 20100330, end: 20100405
  32. URALYT [Concomitant]
     Route: 048

REACTIONS (10)
  - Cholecystitis [Recovered/Resolved]
  - Sepsis [Recovering/Resolving]
  - Cholecystitis acute [Recovered/Resolved]
  - Pyelonephritis [Recovered/Resolved]
  - Spinal compression fracture [Recovered/Resolved]
  - Hydronephrosis [Recovered/Resolved]
  - Disseminated intravascular coagulation [Recovered/Resolved]
  - Gastric ulcer [Recovered/Resolved]
  - Haemorrhage subcutaneous [Recovered/Resolved]
  - Platelet count decreased [Recovered/Resolved]
